FAERS Safety Report 7731506-5 (Version None)
Quarter: 2011Q3

REPORT INFORMATION
  Report Type: 
  Country: None (occurrence: None)
  Receive Date: 20110906
  Receipt Date: 20110607
  Transmission Date: 20111222
  Serious: No
  Sender: FDA-Public Use
  Company Number: US-AMGEN-USASP2011029130

PATIENT
  Age: 80 Year
  Sex: Female

DRUGS (11)
  1. HYDROCODONE [Concomitant]
     Dates: start: 20110509, end: 20110524
  2. NABUMETONE [Concomitant]
  3. SIMVASTATIN [Concomitant]
  4. VITAMIN C                          /00008001/ [Concomitant]
  5. PROLIA [Suspect]
     Indication: OSTEOPOROSIS POSTMENOPAUSAL
     Dosage: 60 MG, Q6MO
     Dates: start: 20110501
  6. LASIX [Concomitant]
  7. CHONDRO RELIEF [Concomitant]
  8. GUAIFENESIN [Concomitant]
  9. PANTOPRAZOLE [Concomitant]
  10. ATENOLOL [Concomitant]
  11. COQ10 [Concomitant]

REACTIONS (7)
  - WRIST FRACTURE [None]
  - CONTUSION [None]
  - MOBILITY DECREASED [None]
  - JOINT SWELLING [None]
  - FALL [None]
  - PAIN [None]
  - ACTIVITIES OF DAILY LIVING IMPAIRED [None]
